FAERS Safety Report 7823804-1 (Version None)
Quarter: 2011Q4

REPORT INFORMATION
  Report Type: 
  Country: None (occurrence: None)
  Receive Date: 20111019
  Receipt Date: 20111011
  Transmission Date: 20120403
  Serious: Yes (Other)
  Sender: FDA-Public Use
  Company Number: JP-ASTELLAS-2011JP007340

PATIENT
  Age: 18 Year
  Sex: Male

DRUGS (11)
  1. VANCOMYCIN HCL [Concomitant]
     Indication: ACUTE RESPIRATORY DISTRESS SYNDROME
  2. FUNGUARD [Suspect]
     Indication: ACUTE RESPIRATORY DISTRESS SYNDROME
  3. METHYLPREDNISOLONE [Concomitant]
     Indication: SEPTIC SHOCK
     Route: 065
  4. VANCOMYCIN HCL [Concomitant]
     Indication: SEPTIC SHOCK
     Route: 065
  5. CYTARABINE [Concomitant]
     Route: 065
  6. CYTARABINE [Concomitant]
     Route: 065
  7. METHYLPREDNISOLONE [Concomitant]
     Indication: ACUTE RESPIRATORY DISTRESS SYNDROME
  8. DAUNORUBICIN HCL [Concomitant]
     Indication: ACUTE LEUKAEMIA
     Route: 065
  9. CYTARABINE [Concomitant]
     Indication: ACUTE LEUKAEMIA
     Route: 065
  10. FUNGUARD [Suspect]
     Indication: SEPTIC SHOCK
     Route: 065
  11. ANTIBIOTICS [Concomitant]
     Indication: FEBRILE NEUTROPENIA
     Route: 065

REACTIONS (1)
  - PANCREATITIS ACUTE [None]
